FAERS Safety Report 7965111-2 (Version None)
Quarter: 2011Q4

REPORT INFORMATION
  Report Type: 
  Country: None (occurrence: None)
  Receive Date: 20111208
  Receipt Date: 20111128
  Transmission Date: 20120403
  Serious: Yes (Hospitalization, Other)
  Sender: FDA-Public Use
  Company Number: US-BAYER-2011-053888

PATIENT
  Age: 29 Year
  Sex: Female
  Weight: 93.878 kg

DRUGS (5)
  1. TORADOL [Concomitant]
     Dosage: UNK
     Dates: start: 20090601
  2. ALBUTEROL [Concomitant]
     Dosage: UNK
     Dates: start: 20090901
  3. LEVONORGESTREL + ETHINYL ESTRADIOL [Concomitant]
     Dosage: UNK
     Dates: start: 20090903
  4. YAZ [Suspect]
     Indication: CONTRACEPTION
     Dosage: UNK
     Dates: start: 20081015, end: 20090903
  5. CIPROFLOXACIN [Concomitant]

REACTIONS (4)
  - CHOLECYSTITIS CHRONIC [None]
  - GALLBLADDER DISORDER [None]
  - CHOLECYSTECTOMY [None]
  - INJURY [None]
